FAERS Safety Report 23403804 (Version 2)
Quarter: 2024Q1

REPORT INFORMATION
  Report Type: Report from Study
  Country: US (occurrence: US)
  Receive Date: 20240116
  Receipt Date: 20240126
  Transmission Date: 20240410
  Serious: Yes (Other)
  Sender: FDA-Public Use
  Company Number: US-TAKEDA-2023TUS025719

PATIENT
  Age: 60 Year
  Sex: Male

DRUGS (2)
  1. GLASSIA [Suspect]
     Active Substance: .ALPHA.1-PROTEINASE INHIBITOR HUMAN
     Indication: Supplementation therapy
     Dosage: UNK
     Route: 065
     Dates: start: 20221116
  2. GLASSIA [Suspect]
     Active Substance: .ALPHA.1-PROTEINASE INHIBITOR HUMAN
     Indication: Supplementation therapy
     Dosage: UNK
     Route: 065
     Dates: start: 20221116

REACTIONS (4)
  - Surgery [Unknown]
  - Insurance issue [Unknown]
  - Product use issue [Unknown]
  - Product dose omission issue [Recovering/Resolving]

NARRATIVE: CASE EVENT DATE: 20230222
